FAERS Safety Report 9290308 (Version 2)
Quarter: 2013Q2

REPORT INFORMATION
  Report Type: Report from Study
  Country: US (occurrence: US)
  Receive Date: 20130515
  Receipt Date: 20130529
  Transmission Date: 20140414
  Serious: Yes (Other)
  Sender: FDA-Public Use
  Company Number: US-VERTEX PHARMACEUTICALS INC-2013-005921

PATIENT
  Sex: Female

DRUGS (21)
  1. VX-770 [Suspect]
     Indication: CYSTIC FIBROSIS
     Dosage: 150 MG, BID
     Route: 048
     Dates: start: 20120315
  2. PULMICORT [Concomitant]
     Dosage: UNK, BID
  3. AZITHROMYCIN [Concomitant]
     Dosage: 500 MG, UNK
  4. ALBUTEROL [Concomitant]
  5. BENADRYL [Concomitant]
     Dosage: 50 MG, PRN
  6. DORNASE ALFA [Concomitant]
     Dosage: 2.5 MG, QD
  7. DOXYCYCLINE [Concomitant]
  8. ESOMEPRAZOLE [Concomitant]
     Dosage: 40 MG, QD
  9. FERROUS SULFATE [Concomitant]
     Dosage: 325 MG, BID
  10. FLUOXETINE [Concomitant]
     Dosage: 80 MG, QD
  11. VICODIN [Concomitant]
     Dosage: UNK, PRN
  12. MOMETASONE [Concomitant]
     Dosage: UNK, PRN
  13. PANCRELIPASE [Concomitant]
     Dosage: UNK, QD
  14. HYPERSAL [Concomitant]
     Dosage: UNK, BID
  15. TOBI [Concomitant]
     Dosage: 300 MG, BID
  16. CALCIUM WITH VITAMIN D [Concomitant]
  17. MONTELUKAST [Concomitant]
     Dosage: 10 MG, QD
  18. VITAMIN K [Concomitant]
  19. MULTIVITAMINS WITH MINERALS [Concomitant]
  20. BUDESONIDE [Concomitant]
     Dosage: UNK, BID
  21. GABAPENTIN [Concomitant]

REACTIONS (3)
  - Sinusitis [Recovered/Resolved]
  - Cough [Recovered/Resolved]
  - Liver function test abnormal [Unknown]
